FAERS Safety Report 10020523 (Version 1)
Quarter: 2014Q1

REPORT INFORMATION
  Report Type: Spontaneous
  Country: US (occurrence: US)
  Receive Date: 20140319
  Receipt Date: 20140319
  Transmission Date: 20141002
  Serious: No
  Sender: FDA-Public Use
  Company Number: US-BIOGENIDEC-2014BI023040

PATIENT
  Age: 63 Year
  Sex: Female
  Weight: 54 kg

DRUGS (5)
  1. TECFIDERA [Suspect]
     Indication: PRODUCT USED FOR UNKNOWN INDICATION
     Route: 048
     Dates: start: 20140303
  2. AMLODIPINE [Concomitant]
  3. WELLBUTRIN [Concomitant]
  4. CELEBREX [Concomitant]
  5. TRAZODONE [Concomitant]

REACTIONS (4)
  - Local swelling [Recovered/Resolved]
  - Hypertension [Unknown]
  - Flushing [Unknown]
  - Abdominal pain upper [Unknown]
